FAERS Safety Report 4757619-8 (Version None)
Quarter: 2005Q3

REPORT INFORMATION
  Report Type: 
  Country: None (occurrence: None)
  Receive Date: 20050830
  Receipt Date: 20050816
  Transmission Date: 20060218
  Serious: Yes (Death, Other)
  Sender: FDA-Public Use
  Company Number: 005439

PATIENT
  Age: 65 Year
  Sex: Female

DRUGS (9)
  1. ZEBETA [Suspect]
  2. BUMETANIDE [Concomitant]
  3. THEOPHYLLINE [Concomitant]
  4. OMEPRAZOLE [Concomitant]
  5. VENTOLIN [Concomitant]
  6. AMIODARONE (AMIODARONE) TABLET [Concomitant]
  7. ACETYLSALICYLIC ACID (ACETYLSALICYLIC ACID) TABLET [Concomitant]
  8. BECLOMETHASONE AQUEOUS (BECLOMETASONE DIPROPIONATE) [Concomitant]
  9. METFORMIN [Concomitant]

REACTIONS (13)
  - BUNDLE BRANCH BLOCK RIGHT [None]
  - CHRONIC OBSTRUCTIVE PULMONARY DISEASE [None]
  - COR PULMONALE [None]
  - DIARRHOEA [None]
  - DIZZINESS [None]
  - DRUG TOXICITY [None]
  - LOWER RESPIRATORY TRACT INFECTION [None]
  - MALAISE [None]
  - MEDICATION ERROR [None]
  - METABOLIC ACIDOSIS [None]
  - NAUSEA [None]
  - RENAL FAILURE [None]
  - VOMITING [None]
